FAERS Safety Report 8590479-6 (Version None)
Quarter: 2012Q3

REPORT INFORMATION
  Report Type: 
  Country: None (occurrence: None)
  Receive Date: 20120813
  Receipt Date: 20120809
  Transmission Date: 20120928
  Serious: Yes (Hospitalization, Other)
  Sender: FDA-Public Use
  Company Number: US-PFIZER INC-2012160043

PATIENT
  Age: 76 Year
  Sex: Female
  Weight: 58.96 kg

DRUGS (2)
  1. LYRICA [Suspect]
     Dosage: UNK
  2. LYRICA [Suspect]
     Indication: FIBROMYALGIA
     Dosage: 150 MG, 3X/DAY
     Route: 048
     Dates: start: 20100701

REACTIONS (8)
  - TIBIA FRACTURE [None]
  - FATIGUE [None]
  - FALL [None]
  - FIBULA FRACTURE [None]
  - ASTHENIA [None]
  - PAIN [None]
  - LOSS OF CONSCIOUSNESS [None]
  - MALAISE [None]
